FAERS Safety Report 4970486-2 (Version None)
Quarter: 2006Q2

REPORT INFORMATION
  Report Type: 
  Country: None (occurrence: None)
  Receive Date: 20060411
  Receipt Date: 20060411
  Transmission Date: 20061013
  Serious: Yes (Hospitalization)
  Sender: FDA-Public Use
  Company Number: None

PATIENT
  Age: 76 Year
  Sex: Female
  Weight: 78 kg

DRUGS (5)
  1. FOSAMAX [Suspect]
     Indication: OSTEOPOROSIS
     Dosage: 70 MG QWEEK PO
     Route: 048
     Dates: start: 20060123, end: 20060326
  2. GLYBURIDE [Concomitant]
  3. VALSARTAN [Concomitant]
  4. METFORMIN [Concomitant]
  5. TRAVATAN [Concomitant]

REACTIONS (1)
  - RASH [None]
